FAERS Safety Report 5281722-X (Version None)
Quarter: 2007Q1

REPORT INFORMATION
  Report Type: 
  Country: None (occurrence: None)
  Receive Date: 20070330
  Receipt Date: 20070327
  Transmission Date: 20070707
  Serious: Yes (Other)
  Sender: FDA-Public Use
  Company Number: US-GLAXOSMITHKLINE-A0644813A

PATIENT
  Age: 83 Year
  Sex: Male

DRUGS (5)
  1. ADVAIR DISKUS 100/50 [Suspect]
     Indication: ASTHMA
     Dosage: 1PUFF TWICE PER DAY
     Route: 055
     Dates: start: 20070101
  2. REFRESH [Concomitant]
  3. ZAROXOLYN [Concomitant]
  4. APRESOLINE [Concomitant]
  5. OXAZEPAM [Concomitant]

REACTIONS (1)
  - VISUAL ACUITY REDUCED [None]
